FAERS Safety Report 19247680 (Version 2)
Quarter: 2021Q2

REPORT INFORMATION
  Report Type: Spontaneous
  Country: CZ (occurrence: CZ)
  Receive Date: 20210512
  Receipt Date: 20210531
  Transmission Date: 20210717
  Serious: Yes (Hospitalization, Disabling, Other)
  Sender: FDA-Public Use
  Company Number: CZ-BIOGEN-2021BI01008384

PATIENT
  Age: 67 Year
  Sex: Female
  Weight: 71 kg

DRUGS (4)
  1. TYSABRI [Suspect]
     Active Substance: NATALIZUMAB
     Indication: RELAPSING-REMITTING MULTIPLE SCLEROSIS
     Dosage: 300 MG I.V. EVERY MONTH, A TOTAL OF 21 APPLICATIONS WERE SUBMITTED
     Route: 042
     Dates: start: 20190328, end: 20201217
  2. BACLOFEN. [Concomitant]
     Active Substance: BACLOFEN
     Indication: MULTIPLE SCLEROSIS
     Dosage: DOSAGE 25 MG TBL 1?0?1
     Route: 048
     Dates: start: 20180328, end: 20210412
  3. IMUNOR [Concomitant]
     Active Substance: UNSPECIFIED INGREDIENT
     Indication: HYPERGAMMAGLOBULINAEMIA BENIGN MONOCLONAL
     Dosage: 1X FOR 14 DAYS
     Route: 048
     Dates: start: 20180801, end: 20210412
  4. CITALOPRAM [Concomitant]
     Active Substance: CITALOPRAM HYDROBROMIDE
     Indication: DEPRESSION
     Route: 048
     Dates: start: 20180301, end: 20210412

REACTIONS (1)
  - Renal cancer [Recovered/Resolved with Sequelae]

NARRATIVE: CASE EVENT DATE: 20210210
